FAERS Safety Report 7642474-9 (Version None)
Quarter: 2011Q3

REPORT INFORMATION
  Report Type: 
  Country: None (occurrence: None)
  Receive Date: 20110728
  Receipt Date: 20110719
  Transmission Date: 20111222
  Serious: Yes (Life-Threatening, Other)
  Sender: FDA-Public Use
  Company Number: US-ELI_LILLY_AND_COMPANY-US201107005566

PATIENT
  Sex: Male

DRUGS (1)
  1. AXIRON [Suspect]
     Dosage: UNK, UNKNOWN
     Route: 065

REACTIONS (1)
  - ANAPHYLACTIC SHOCK [None]
